FAERS Safety Report 16405791 (Version 3)
Quarter: 2019Q2

REPORT INFORMATION
  Report Type: Spontaneous
  Country: VN (occurrence: VN)
  Receive Date: 20190607
  Receipt Date: 20190621
  Transmission Date: 20190711
  Serious: Yes (Hospitalization)
  Sender: FDA-Public Use
  Company Number: PHHY2019VN125956

PATIENT
  Age: 10 Year
  Sex: Male
  Weight: 18.5 kg

DRUGS (8)
  1. DEFEROXAMINE [Suspect]
     Active Substance: DEFEROXAMINE\DEFEROXAMINE MESYLATE
     Indication: IRON OVERLOAD
     Dosage: (NON-ROUTINE) EVERY 4-5 MONTHS
     Route: 065
  2. PENICILLIN V [Concomitant]
     Active Substance: PENICILLIN V
     Indication: SPLEEN OPERATION
     Dosage: UNK, QD
     Route: 048
  3. VITAMIN E [Concomitant]
     Active Substance: .ALPHA.-TOCOPHEROL
     Dosage: 400 UI, UNK
     Route: 065
  4. FOLIC ACID. [Concomitant]
     Active Substance: FOLIC ACID
     Indication: SPLEEN OPERATION
     Dosage: 1 DF, QD
     Route: 065
  5. FOLIC ACID. [Concomitant]
     Active Substance: FOLIC ACID
     Dosage: 5 MG, UNK
     Route: 065
  6. VITAMIN E [Concomitant]
     Active Substance: .ALPHA.-TOCOPHEROL
     Indication: SPLEEN OPERATION
     Dosage: 1 DF, QD
     Route: 065
  7. DEFEROXAMINE [Suspect]
     Active Substance: DEFEROXAMINE\DEFEROXAMINE MESYLATE
     Dosage: 30 MG/KG, QD
     Route: 065
  8. AMOXICILLIN + CLAVULANATE POTASSIUM [Suspect]
     Active Substance: AMOXICILLIN\CLAVULANATE POTASSIUM
     Indication: OTITIS MEDIA
     Dosage: UNK
     Route: 065

REACTIONS (10)
  - Syncope [Unknown]
  - Diabetes mellitus [Not Recovered/Not Resolved]
  - Blood glucose fluctuation [Unknown]
  - Illusion [Unknown]
  - Screaming [Unknown]
  - Weight decreased [Unknown]
  - Otitis media [Unknown]
  - Hyperhidrosis [Unknown]
  - Hepatomegaly [Unknown]
  - Seizure [Unknown]
